FAERS Safety Report 15830969 (Version 1)
Quarter: 2018Q4

REPORT INFORMATION
  Report Type: Spontaneous
  Country: US (occurrence: US)
  Receive Date: 20181219
  Receipt Date: 20181219
  Transmission Date: 20190205
  Serious: Yes (Hospitalization, Other)
  Sender: FDA-Public Use
  Company Number: None

PATIENT
  Age: 68 Year
  Sex: Female

DRUGS (13)
  1. METFORMIN [Concomitant]
     Active Substance: METFORMIN HYDROCHLORIDE
  2. VITAMIN B12 [Concomitant]
     Active Substance: CYANOCOBALAMIN
  3. SPIRNOLACTONE [Concomitant]
  4. ASPIRIN. [Concomitant]
     Active Substance: ASPIRIN
  5. CAPECITABINE 500 MG [Suspect]
     Active Substance: CAPECITABINE
     Indication: RECTAL CANCER
     Dosage: 2 TABLETS 500MG  BID M-F ORAL
     Route: 048
     Dates: start: 20180731
  6. OXYCODONE [Concomitant]
     Active Substance: OXYCODONE
  7. LYRICA [Concomitant]
     Active Substance: PREGABALIN
  8. WOMENS ONE DAILY [Concomitant]
  9. PRAVASTATIN. [Concomitant]
     Active Substance: PRAVASTATIN
  10. PANTOPRAZOLE [Concomitant]
     Active Substance: PANTOPRAZOLE
  11. ISOSORB MONO [Concomitant]
     Active Substance: ISOSORBIDE MONONITRATE
  12. METOPROLOL. [Concomitant]
     Active Substance: METOPROLOL
  13. MAGNESIUM [Concomitant]
     Active Substance: MAGNESIUM

REACTIONS (1)
  - Rectal haemorrhage [None]

NARRATIVE: CASE EVENT DATE: 201812
